FAERS Safety Report 4659346-4 (Version None)
Quarter: 2005Q2

REPORT INFORMATION
  Report Type: 
  Country: None (occurrence: None)
  Receive Date: 20050510
  Receipt Date: 20050428
  Transmission Date: 20051028
  Serious: Yes (Hospitalization)
  Sender: FDA-Public Use
  Company Number: 05P-056-0299268-00

PATIENT
  Age: 5 Year
  Sex: Female
  Weight: 23 kg

DRUGS (7)
  1. SEVOFLURANE [Suspect]
     Dosage: INHALATION
     Route: 055
     Dates: start: 20050406, end: 20050406
  2. TRAMADOL CHLORYDRATE [Suspect]
     Dosage: 0.15 ML, 1 IN 1 D, PER ORAL
     Route: 048
     Dates: start: 20050406, end: 20050406
  3. PROPOFOL [Concomitant]
  4. AMOXICILLIN [Concomitant]
  5. DEXAMETHASONE [Concomitant]
  6. ATROPINE [Concomitant]
  7. PARACETAMOL [Concomitant]

REACTIONS (9)
  - ASTHENIA [None]
  - CHEILITIS [None]
  - DYSKINESIA [None]
  - FACE OEDEMA [None]
  - GLOSSITIS [None]
  - PYREXIA [None]
  - SALIVARY HYPERSECRETION [None]
  - TONGUE DISCOLOURATION [None]
  - TONGUE OEDEMA [None]
